FAERS Safety Report 10524209 (Version 1)
Quarter: 2014Q4

REPORT INFORMATION
  Report Type: Spontaneous
  Country: FR (occurrence: FR)
  Receive Date: 20141017
  Receipt Date: 20141017
  Transmission Date: 20150528
  Serious: Yes (Other)
  Sender: FDA-Public Use
  Company Number: FR-009507513-1410FRA006487

PATIENT
  Sex: Female
  Weight: 57 kg

DRUGS (7)
  1. TRIMEBUTINE [Concomitant]
     Active Substance: TRIMEBUTINE
  2. SPECIAFOLDINE [Concomitant]
     Active Substance: FOLIC ACID
  3. INEGY [Suspect]
     Active Substance: EZETIMIBE\SIMVASTATIN
     Dosage: 1 DF, QD
     Route: 048
     Dates: start: 2013, end: 201409
  4. AERIUS [Concomitant]
     Active Substance: DESLORATADINE
  5. SPAGULAX [Concomitant]
     Active Substance: PLANTAGO OVATA SEED
  6. PREVISCAN [Concomitant]
     Active Substance: FLUINDIONE
  7. INEXIUM (ESOMEPRAZOLE MAGNESIUM) [Concomitant]
     Active Substance: ESOMEPRAZOLE MAGNESIUM

REACTIONS (1)
  - Systemic lupus erythematosus [Not Recovered/Not Resolved]

NARRATIVE: CASE EVENT DATE: 2014
